FAERS Safety Report 7355573-6 (Version None)
Quarter: 2011Q1

REPORT INFORMATION
  Report Type: 
  Country: None (occurrence: None)
  Receive Date: 20110311
  Receipt Date: 20110311
  Transmission Date: 20110831
  Serious: No
  Sender: FDA-Public Use
  Company Number: None

PATIENT
  Age: 76 Year
  Sex: Female
  Weight: 76.2043 kg

DRUGS (1)
  1. CLARITHROMYCIN [Suspect]
     Dosage: 1 TABLET 2 A DAY ORAL
     Route: 048
     Dates: start: 20101202, end: 20101212

REACTIONS (7)
  - ABDOMINAL PAIN UPPER [None]
  - DYSPNOEA [None]
  - DISCOMFORT [None]
  - NAUSEA [None]
  - DYSPEPSIA [None]
  - DEPRESSION [None]
  - CONFUSIONAL STATE [None]
